FAERS Safety Report 5011239-9 (Version None)
Quarter: 2006Q2

REPORT INFORMATION
  Report Type: 
  Country: None (occurrence: None)
  Receive Date: 20060523
  Receipt Date: 20060523
  Transmission Date: 20061013
  Serious: Yes (Life-Threatening, Other)
  Sender: FDA-Public Use
  Company Number: None

PATIENT
  Age: 52 Year
  Sex: Female
  Weight: 81.6475 kg

DRUGS (1)
  1. PAXIL CR [Suspect]
     Indication: DEPRESSION
     Dosage: 150 MG    1X DAILY   PO
     Route: 048
     Dates: start: 20040401, end: 20050601

REACTIONS (15)
  - CRYING [None]
  - DRUG WITHDRAWAL SYNDROME [None]
  - FATIGUE [None]
  - FORMICATION [None]
  - INSOMNIA [None]
  - LOSS OF EMPLOYMENT [None]
  - MARITAL PROBLEM [None]
  - MIGRAINE [None]
  - MUSCLE SPASMS [None]
  - PAIN [None]
  - PALPITATIONS [None]
  - PERSONALITY CHANGE [None]
  - SOMNOLENCE [None]
  - SUICIDAL IDEATION [None]
  - VOMITING [None]
